FAERS Safety Report 9827114 (Version 1)
Quarter: 2014Q1

REPORT INFORMATION
  Report Type: Spontaneous
  Country: US (occurrence: US)
  Receive Date: 20140117
  Receipt Date: 20140117
  Transmission Date: 20141002
  Serious: Yes (Other)
  Sender: FDA-Public Use
  Company Number: US-ASTRAZENECA-2014SE01539

PATIENT
  Age: 68 Year
  Sex: Male

DRUGS (29)
  1. LIDOCAINE [Suspect]
     Indication: CARDIAC ARREST
     Dosage: 2000 MG/ML, 2 G IV X I DOSE; 1-2 MGLMIN IV
     Route: 041
  2. DEXMEDETOMIDINE [Suspect]
     Indication: SEDATION
     Dosage: 4 UG/ML,0.8 UG/KG/H
     Route: 042
  3. CEFTRIAXONE [Concomitant]
     Dosage: 1 GLVQ 12 HOURS
  4. PROPOFOL [Concomitant]
     Indication: SEDATION
     Dosage: 10 MG/ML , TITRATE TO A RASS -2: 6-10 UG/KG/MIN
     Route: 042
  5. PROPOFOL [Concomitant]
     Indication: SEDATION
     Dosage: 10 MG/ML , TITRATE TO A RASS -2: 10-40 UG/KG/MIN
     Route: 042
  6. LORAZEPAM [Concomitant]
     Indication: SEDATION
  7. FENTANYL [Concomitant]
     Indication: SEDATION
     Dosage: 0.1 MG/ML
  8. NOREPINEPHRINE [Concomitant]
     Indication: BLOOD PRESSURE INADEQUATELY CONTROLLED
     Dosage: MAX OF0.8 UGLKG/MIN
  9. VANCOMYCIN [Concomitant]
     Dosage: 650 MG IV Q 24 HOURS
  10. PIPERACILLIN+TAZOBACTAM [Concomitant]
     Dosage: 3375 MG IV Q 6 HOURS
  11. PIPERACILLIN+TAZOBACTAM [Concomitant]
     Dosage: 2250 MG IV Q 6 HOURS
  12. LEVOFLOXACIN [Concomitant]
  13. FAMOTIDINE [Concomitant]
     Dosage: 20 MG IV Q 12 HOURS
  14. ACETAMINOPHEN [Concomitant]
     Dosage: 600 MG PR Q 6 HOURS PM
  15. HYDROCODONE/APAP [Concomitant]
     Dosage: 5/325 MG 2 TABS Q 4 HOURS PRN
  16. INSULIN [Concomitant]
     Dosage: TITRATE TO A BLOOD GLUCOSE OF 121-150 MGLDL
  17. EPINEPHRINE [Concomitant]
     Dosage: 0.15 UG/KG/MIN
  18. MILRINONE [Concomitant]
     Dosage: 0.25 UG/KG/MIN
  19. CEFAZOLIN [Concomitant]
     Dosage: I G IV Q 8 HOURS
  20. BUMETANIDE [Concomitant]
     Dosage: I MG IV PUSH  I DOSE
  21. BUMETANIDE [Concomitant]
     Dosage: 2 MG IV PUSH  I DOSE
  22. ASPIRIN [Concomitant]
     Dosage: 81 MG PO Q 24 HOURS
  23. ASPIRIN [Concomitant]
     Dosage: 325 MG PO Q 24 HOURS
  24. DILTIAZEM [Concomitant]
     Dosage: 10 MGLH
  25. AMIODARONE [Concomitant]
     Dosage: 150 MG IV IE I DOSE
  26. AMIODARONE [Concomitant]
     Dosage: 0.5-1 MGLMIN IV INFUSION
  27. DIGOXIN [Concomitant]
     Dosage: 0.5 MG IV X I DOSE
  28. DIGOXIN [Concomitant]
     Dosage: 0.25 MG IV X I DOSE
  29. FUROSEMIDE [Concomitant]
     Dosage: 20 MGLH IV

REACTIONS (1)
  - Pyrexia [Recovering/Resolving]
